FAERS Safety Report 15346890 (Version 1)
Quarter: 2018Q3

REPORT INFORMATION
  Report Type: Report from Study
  Country: AR (occurrence: AR)
  Receive Date: 20180904
  Receipt Date: 20180904
  Transmission Date: 20181010
  Serious: Yes (Hospitalization)
  Sender: FDA-Public Use
  Company Number: PHHY2018AR083763

PATIENT
  Age: 70 Year
  Sex: Female

DRUGS (2)
  1. ENTRESTO [Suspect]
     Active Substance: SACUBITRIL\VALSARTAN
     Indication: CARDIAC FAILURE
     Dosage: 1 DF (100 MG), Q12H
     Route: 048
     Dates: start: 201807, end: 20180818
  2. ENTRESTO [Suspect]
     Active Substance: SACUBITRIL\VALSARTAN
     Dosage: 0.5 DF (50 MG), Q12H
     Route: 065
     Dates: start: 20180822

REACTIONS (7)
  - Speech disorder [Recovering/Resolving]
  - Prescribed underdose [Not Recovered/Not Resolved]
  - Hypoaesthesia [Recovering/Resolving]
  - Wrong technique in product usage process [Not Recovered/Not Resolved]
  - Cerebrovascular accident [Recovering/Resolving]
  - Hypotension [Recovered/Resolved]
  - Drug prescribing error [Not Recovered/Not Resolved]

NARRATIVE: CASE EVENT DATE: 20180812
